FAERS Safety Report 11216736 (Version 2)
Quarter: 2015Q3

REPORT INFORMATION
  Report Type: Report from Study
  Country: US (occurrence: US)
  Receive Date: 20150624
  Receipt Date: 20150911
  Transmission Date: 20151125
  Serious: Yes (Other)
  Sender: FDA-Public Use
  Company Number: US-ASTRAZENECA-2015SE10721

PATIENT
  Sex: Female

DRUGS (1)
  1. LYNPARZA [Suspect]
     Active Substance: OLAPARIB
     Indication: OVARIAN CANCER
     Route: 048

REACTIONS (8)
  - Dizziness [Unknown]
  - Constipation [Recovering/Resolving]
  - Transient ischaemic attack [Unknown]
  - Headache [Unknown]
  - Dry mouth [Unknown]
  - Nausea [Unknown]
  - Fatigue [Recovering/Resolving]
  - Rash erythematous [Not Recovered/Not Resolved]
